FAERS Safety Report 9419489 (Version 1)
Quarter: 2013Q3

REPORT INFORMATION
  Report Type: Spontaneous
  Country: DE (occurrence: DE)
  Receive Date: 20130725
  Receipt Date: 20130725
  Transmission Date: 20140515
  Serious: Yes (Hospitalization)
  Sender: FDA-Public Use
  Company Number: DE-AMGEN-DEUSP2013051430

PATIENT
  Sex: 0

DRUGS (11)
  1. NEULASTA [Suspect]
     Indication: PRODUCT USED FOR UNKNOWN INDICATION
     Dosage: UNK
     Route: 065
  2. BRENTUXIMAB VEDOTIN [Suspect]
     Indication: HODGKIN^S DISEASE
     Dosage: 1.8 MG/KG, QCYCLE
     Route: 065
     Dates: start: 20130515
  3. ETOPOSIDE [Suspect]
     Indication: HODGKIN^S DISEASE
     Dosage: 150 MG/M2, QCYCLE
     Route: 065
     Dates: start: 20130516
  4. CYCLOPHOSPHAMIDE [Suspect]
     Indication: HODGKIN^S DISEASE
     Dosage: 1250 MG/M2, QCYCLE
     Route: 065
     Dates: start: 20130516
  5. DOXORUBICIN [Suspect]
     Indication: HODGKIN^S DISEASE
     Dosage: 40 MG/M2, QCYCLE
     Route: 065
     Dates: start: 20130516
  6. DACARBAZINE [Suspect]
     Indication: HODGKIN^S DISEASE
     Dosage: 250 MG/M2, QCYCLE
     Route: 065
     Dates: start: 20130517
  7. DEXAMETHASONE [Suspect]
     Indication: HODGKIN^S DISEASE
     Dosage: 40 MG, QCYCLE
     Route: 065
     Dates: start: 20130516
  8. PANTOZOL                           /02692601/ [Concomitant]
     Dosage: UNK
  9. COTRIM FORTE EU RHO [Concomitant]
     Dosage: UNK
     Dates: start: 20130515
  10. METOPROLOL                         /00376902/ [Concomitant]
     Dosage: UNK
  11. CIPRAMIL                           /00582603/ [Concomitant]
     Dosage: UNK

REACTIONS (2)
  - Pyrexia [Recovered/Resolved]
  - Bone pain [Recovered/Resolved]
